FAERS Safety Report 5050553-8 (Version None)
Quarter: 2006Q3

REPORT INFORMATION
  Report Type: 
  Country: None (occurrence: None)
  Receive Date: 20060713
  Receipt Date: 20060711
  Transmission Date: 20061208
  Serious: Yes (Other)
  Sender: FDA-Public Use
  Company Number: US-GLAXOSMITHKLINE-A0611806A

PATIENT
  Age: 61 Year
  Sex: Male

DRUGS (3)
  1. PAXIL [Suspect]
     Indication: DEPRESSION
     Route: 048
     Dates: start: 20060529
  2. ALBUTEROL SPIROS [Concomitant]
  3. PLAVIX [Concomitant]

REACTIONS (8)
  - ANXIETY [None]
  - CONFUSIONAL STATE [None]
  - CRYING [None]
  - FEELING HOT [None]
  - NAUSEA [None]
  - NIGHT SWEATS [None]
  - SEROTONIN SYNDROME [None]
  - TREMOR [None]
